FAERS Safety Report 20447017 (Version 1)
Quarter: 2022Q1

REPORT INFORMATION
  Report Type: Spontaneous
  Country: US (occurrence: US)
  Receive Date: 20220209
  Receipt Date: 20220209
  Transmission Date: 20220424
  Serious: Yes (Congenital Anomaly)
  Sender: FDA-Public Use
  Company Number: US-PROCTER_AND_GAMBLE-PH22001232

PATIENT

DRUGS (1)
  1. DEXTROMETHORPHAN\GUAIFENESIN [Suspect]
     Active Substance: DEXTROMETHORPHAN\GUAIFENESIN
     Dosage: UNK
     Route: 064

REACTIONS (21)
  - Neural tube defect [Unknown]
  - Anencephaly [Unknown]
  - Spina bifida [Unknown]
  - Hydrocephalus [Unknown]
  - Anotia [Unknown]
  - Microtia [Unknown]
  - Cleft lip and palate [Unknown]
  - Anorectal malformation [Unknown]
  - Anorectal stenosis [Unknown]
  - Congenital small intestinal atresia [Unknown]
  - Small intestinal stenosis [Unknown]
  - Hypospadias [Unknown]
  - Transposition of the great vessels [Unknown]
  - Hypoplastic left heart syndrome [Unknown]
  - Pulmonary valve stenosis congenital [Unknown]
  - Fallot^s tetralogy [Unknown]
  - Craniosynostosis [Unknown]
  - Diaphragmatic hernia [Unknown]
  - Gastroschisis [Unknown]
  - Limb malformation [Unknown]
  - Foetal exposure during pregnancy [Unknown]
